FAERS Safety Report 7887489-0 (Version None)
Quarter: 2011Q4

REPORT INFORMATION
  Report Type: 
  Country: None (occurrence: None)
  Receive Date: 20111102
  Receipt Date: 20110719
  Transmission Date: 20120403
  Serious: No
  Sender: FDA-Public Use
  Company Number: US-AMGEN-USASP2011036678

PATIENT
  Sex: Female

DRUGS (2)
  1. ENBREL [Suspect]
     Indication: FIBROMYALGIA
  2. ENBREL [Suspect]
     Indication: PSORIATIC ARTHROPATHY
     Dosage: 50 MG, QWK
     Dates: start: 20090101

REACTIONS (7)
  - FIBROMYALGIA [None]
  - BONE PAIN [None]
  - ARTHRALGIA [None]
  - BURSITIS [None]
  - HYPOAESTHESIA [None]
  - PAIN IN EXTREMITY [None]
  - ABASIA [None]
